FAERS Safety Report 6176910-4 (Version None)
Quarter: 2009Q2

REPORT INFORMATION
  Report Type: 
  Country: None (occurrence: None)
  Receive Date: 20090501
  Receipt Date: 20081219
  Transmission Date: 20091009
  Serious: Yes (Hospitalization)
  Sender: FDA-Public Use
  Company Number: US-ALEXION-A200800435

PATIENT
  Sex: Female

DRUGS (1)
  1. SOLIRIS [Suspect]
     Route: 042

REACTIONS (4)
  - ARTHROPOD BITE [None]
  - HAEMOGLOBIN DECREASED [None]
  - INFECTION [None]
  - PYREXIA [None]
